FAERS Safety Report 22169602 (Version 2)
Quarter: 2023Q2

REPORT INFORMATION
  Report Type: Spontaneous
  Country: US (occurrence: US)
  Receive Date: 20230404
  Receipt Date: 20230404
  Transmission Date: 20230722
  Serious: Yes (Life-Threatening)
  Sender: FDA-Public Use
  Company Number: US-HERON THERAPEUTICS, INC-HRTX-2023-000927

PATIENT
  Sex: Female

DRUGS (2)
  1. ZYNRELEF [Suspect]
     Active Substance: BUPIVACAINE\MELOXICAM
     Indication: Postoperative analgesia
     Dosage: 200 MILLIGRAM, SINGLE
     Dates: start: 20230314, end: 20230314
  2. PROCAINE [Concomitant]
     Active Substance: PROCAINE
     Indication: Product used for unknown indication

REACTIONS (1)
  - Resuscitation [Unknown]
